FAERS Safety Report 12190572 (Version 1)
Quarter: 2016Q1

REPORT INFORMATION
  Report Type: Spontaneous
  Country: US (occurrence: US)
  Receive Date: 20160318
  Receipt Date: 20160318
  Transmission Date: 20160526
  Serious: No
  Sender: FDA-Public Use
  Company Number: US-ZYDUS-009882

PATIENT
  Age: 38 Year
  Sex: Female

DRUGS (3)
  1. NEBIVOLOL. [Concomitant]
     Active Substance: NEBIVOLOL
     Indication: HYPERTENSION
  2. LAMOTRIGINE. [Suspect]
     Active Substance: LAMOTRIGINE
     Indication: AFFECTIVE DISORDER
     Route: 048
     Dates: start: 20151220, end: 20151220
  3. HYDROCODONE BITARTRATE/PARACETAMOL [Concomitant]

REACTIONS (2)
  - Throat tightness [Recovered/Resolved]
  - Rash [Recovered/Resolved]

NARRATIVE: CASE EVENT DATE: 20151220
